FAERS Safety Report 8091142-0 (Version None)
Quarter: 2012Q1

REPORT INFORMATION
  Report Type: 
  Country: None (occurrence: None)
  Receive Date: 20120129
  Receipt Date: 20110920
  Transmission Date: 20120608
  Serious: No
  Sender: FDA-Public Use
  Company Number: US-ABBOTT-11P-163-0856529-00

PATIENT
  Sex: Female
  Weight: 122.58 kg

DRUGS (5)
  1. HUMIRA [Suspect]
     Dates: start: 20110701
  2. HUMIRA [Suspect]
     Indication: RHEUMATOID ARTHRITIS
     Dates: start: 20060101
  3. LYRICA [Concomitant]
     Indication: FIBROMYALGIA
  4. CYMBALTA [Concomitant]
     Indication: PRODUCT USED FOR UNKNOWN INDICATION
  5. RELAFEN [Concomitant]
     Indication: PRODUCT USED FOR UNKNOWN INDICATION

REACTIONS (7)
  - PSORIATIC ARTHROPATHY [None]
  - OSTEOARTHRITIS [None]
  - PAIN [None]
  - PLANTAR FASCIITIS [None]
  - MUSCLE TIGHTNESS [None]
  - PAIN IN EXTREMITY [None]
  - MUSCULOSKELETAL STIFFNESS [None]
